FAERS Safety Report 9415020 (Version 2)
Quarter: 2013Q3

REPORT INFORMATION
  Report Type: Spontaneous
  Country: JP (occurrence: JP)
  Receive Date: 20130723
  Receipt Date: 20130904
  Transmission Date: 20140515
  Serious: Yes (Hospitalization)
  Sender: FDA-Public Use
  Company Number: JP-EISAI INC-E2090-02764-SPO-JP

PATIENT
  Age: 1 Year
  Sex: Male

DRUGS (4)
  1. EXCEGRAN [Suspect]
     Indication: CONVULSION
     Route: 048
     Dates: start: 20130612, end: 20130619
  2. EXCEGRAN [Suspect]
     Indication: CONVULSION
  3. ZARONTIN [Suspect]
     Indication: CONVULSION
     Dosage: 100 MG/DAY
     Route: 048
     Dates: start: 20130531, end: 20130629
  4. DEPAKENE [Concomitant]
     Indication: EPILEPSY
     Dosage: UNKNOWN
     Route: 048

REACTIONS (1)
  - Stevens-Johnson syndrome [Recovering/Resolving]
